FAERS Safety Report 4728840-X (Version None)
Quarter: 2005Q3

REPORT INFORMATION
  Report Type: 
  Country: None (occurrence: None)
  Receive Date: 20050729
  Receipt Date: 20050720
  Transmission Date: 20060218
  Serious: Yes (Other)
  Sender: FDA-Public Use
  Company Number: US-ROCHE-411552

PATIENT
  Age: 35 Year
  Sex: Male

DRUGS (5)
  1. PEGASYS [Suspect]
     Route: 058
     Dates: start: 20050220
  2. COPEGUS [Suspect]
     Route: 048
     Dates: start: 20050220
  3. MARIJUANA [Concomitant]
     Indication: NAUSEA
     Dates: start: 20050615, end: 20050718
  4. MARINOL [Concomitant]
     Indication: VOMITING
     Dates: start: 20050615, end: 20050621
  5. ATIVAN [Concomitant]
     Indication: PANIC ATTACK
     Dosage: DOSE INCREASED ON 20 JULY 2005 TO 2 MG FOUR TIMES A DAY.

REACTIONS (5)
  - FEAR [None]
  - INSOMNIA [None]
  - NAUSEA [None]
  - PANIC ATTACK [None]
  - VOMITING [None]
